FAERS Safety Report 7352676-7 (Version None)
Quarter: 2011Q1

REPORT INFORMATION
  Report Type: 
  Country: None (occurrence: None)
  Receive Date: 20110315
  Receipt Date: 20110311
  Transmission Date: 20110831
  Serious: Yes (Hospitalization)
  Sender: FDA-Public Use
  Company Number: IT-PFIZER INC-2011055079

PATIENT
  Age: 92 Year
  Sex: Male

DRUGS (3)
  1. FRAGMIN [Suspect]
     Indication: IMMOBILISATION PROLONGED
     Dosage: 5000 IU, UNK
     Route: 058
     Dates: start: 20110102, end: 20110205
  2. MEDROL [Suspect]
     Indication: BRONCHOPNEUMOPATHY
     Dosage: 4 MG, 1X/DAY
     Route: 048
     Dates: start: 20100908, end: 20110205
  3. ACECLOFENAC [Suspect]
     Indication: MUSCULOSKELETAL PAIN
     Dosage: 100 MG, UNK
     Route: 048
     Dates: start: 20110201, end: 20110205

REACTIONS (1)
  - HAEMATEMESIS [None]
